FAERS Safety Report 6839612-4 (Version None)
Quarter: 2010Q3

REPORT INFORMATION
  Report Type: 
  Country: None (occurrence: None)
  Receive Date: 20100714
  Receipt Date: 20100707
  Transmission Date: 20110219
  Serious: Yes (Hospitalization, Other)
  Sender: FDA-Public Use
  Company Number: BR-ELI_LILLY_AND_COMPANY-BR201007001784

PATIENT
  Sex: Female
  Weight: 60 kg

DRUGS (3)
  1. HUMALOG MIX 75/25 [Suspect]
     Dosage: 30 IU, EACH MORNING
     Route: 065
     Dates: start: 20070101
  2. HUMALOG MIX 75/25 [Suspect]
     Dosage: 18 IU, DAILY (1/D)
     Route: 065
     Dates: start: 20070101
  3. HUMALOG MIX 75/25 [Suspect]
     Dosage: 16 IU, DAILY (1/D)
     Route: 065
     Dates: start: 20070101

REACTIONS (3)
  - DRUG INEFFECTIVE [None]
  - INFARCTION [None]
  - VENOUS OCCLUSION [None]
